FAERS Safety Report 17875587 (Version 4)
Quarter: 2020Q4

REPORT INFORMATION
  Report Type: Spontaneous
  Country: US (occurrence: US)
  Receive Date: 20200609
  Receipt Date: 20201217
  Transmission Date: 20210113
  Serious: No
  Sender: FDA-Public Use
  Company Number: US-GLAXOSMITHKLINE-US2020AMR091614

PATIENT
  Sex: Female

DRUGS (4)
  1. ZEJULA [Suspect]
     Active Substance: NIRAPARIB
     Indication: OVARIAN CANCER
     Dosage: 100 MG, QD
  2. TRAMADOL. [Concomitant]
     Active Substance: TRAMADOL
     Indication: PRODUCT USED FOR UNKNOWN INDICATION
     Dosage: UNK
  3. ZEJULA [Suspect]
     Active Substance: NIRAPARIB
     Indication: OVARIAN CANCER
     Dosage: 200 MG, QD
     Route: 065
     Dates: start: 20200520
  4. ZEJULA [Suspect]
     Active Substance: NIRAPARIB
     Dosage: 100 G, QD

REACTIONS (6)
  - Off label use [Unknown]
  - Decreased appetite [Unknown]
  - Back pain [Unknown]
  - Ill-defined disorder [Unknown]
  - Underdose [Unknown]
  - Constipation [Not Recovered/Not Resolved]
